FAERS Safety Report 14904971 (Version 1)
Quarter: 2018Q2

REPORT INFORMATION
  Report Type: Spontaneous
  Country: US (occurrence: US)
  Receive Date: 20180517
  Receipt Date: 20180517
  Transmission Date: 20180711
  Serious: No
  Sender: FDA-Public Use
  Company Number: US-SA-2017SA214306

PATIENT
  Age: 61 Year
  Sex: Female

DRUGS (9)
  1. RAPAMUNE [Concomitant]
     Active Substance: SIROLIMUS
  2. SOLOSTAR [Suspect]
     Active Substance: DEVICE
     Dates: start: 2002
  3. LANTUS [Concomitant]
     Active Substance: INSULIN GLARGINE
     Dates: end: 201612
  4. SOLOSTAR [Concomitant]
     Active Substance: DEVICE
     Dates: start: 201612
  5. PROGRAF [Concomitant]
     Active Substance: TACROLIMUS\TACROLIMUS ANHYDROUS
  6. TOUJEO [Concomitant]
     Active Substance: INSULIN GLARGINE
     Dates: start: 201612
  7. LANTUS SOLOSTAR [Suspect]
     Active Substance: INSULIN GLARGINE
     Dosage: DOSE:15 UNIT(S)
     Route: 051
     Dates: start: 2002
  8. APIDRA [Concomitant]
     Active Substance: INSULIN GLULISINE
  9. HUMALOG [Concomitant]
     Active Substance: INSULIN LISPRO

REACTIONS (1)
  - Injection site extravasation [Unknown]

NARRATIVE: CASE EVENT DATE: 201710
